FAERS Safety Report 25455478 (Version 1)
Quarter: 2025Q2

REPORT INFORMATION
  Report Type: Spontaneous
  Country: US (occurrence: US)
  Receive Date: 20250619
  Receipt Date: 20250619
  Transmission Date: 20250717
  Serious: No
  Sender: CSL Plasma
  Company Number: US-CSLP-29702026539-V14372954-2

PATIENT
  Age: 26 Year
  Sex: Female

DRUGS (2)
  1. ANTICOAGULANT SODIUM CITRATE [Suspect]
     Active Substance: SODIUM CITRATE
     Indication: Anticoagulant therapy
     Route: 050
     Dates: start: 20250530, end: 20250530
  2. PHENTERMINE [Concomitant]
     Active Substance: PHENTERMINE
     Indication: Weight decreased

REACTIONS (8)
  - Hyperhidrosis [Recovered/Resolved]
  - Feeling hot [Recovered/Resolved]
  - Nausea [Recovered/Resolved]
  - Pallor [Recovered/Resolved]
  - Dizziness [Recovered/Resolved]
  - Tetany [Recovered/Resolved]
  - Hypoaesthesia [Recovered/Resolved]
  - Paraesthesia [Recovered/Resolved]

NARRATIVE: CASE EVENT DATE: 20250530
